FAERS Safety Report 24223169 (Version 1)
Quarter: 2024Q3

REPORT INFORMATION
  Report Type: Report from Study
  Country: IT (occurrence: None)
  Receive Date: 20240819
  Receipt Date: 20240819
  Transmission Date: 20241017
  Serious: Yes (Life-Threatening, Hospitalization)
  Sender: ASTRAZENECA
  Company Number: 2024A185237

PATIENT
  Age: 67 Year
  Sex: Male
  Weight: 95 kg

DRUGS (6)
  1. CALQUENCE [Suspect]
     Active Substance: ACALABRUTINIB
     Indication: Chronic lymphocytic leukaemia
     Dosage: 100 MG CAPSULES, 1 CP EVERY 12 HOURS (2 CPS/DAY)100.0MG UNKNOWN
     Route: 048
     Dates: start: 20230905, end: 20231018
  2. RAMIPRIL [Concomitant]
     Active Substance: RAMIPRIL
     Indication: Hypertension
     Dosage: 10 MG/DAY10.0MG UNKNOWN
     Route: 048
  3. METFORMIN HYDROCHLORIDE [Concomitant]
     Active Substance: METFORMIN HYDROCHLORIDE
     Indication: Diabetes mellitus
     Dosage: 1000 MG/DAY1000.0MG UNKNOWN
     Route: 048
  4. LERCANIDIPINE [Concomitant]
     Active Substance: LERCANIDIPINE
     Indication: Hypertension
     Dosage: 10 MG/DAY10.0MG UNKNOWN
     Route: 048
  5. JANUVIA [Concomitant]
     Active Substance: SITAGLIPTIN PHOSPHATE
     Indication: Diabetes mellitus
     Dosage: 100 MG/DAY100.0MG UNKNOWN
     Route: 048
  6. SILODOSIN [Concomitant]
     Active Substance: SILODOSIN
     Indication: Benign prostatic hyperplasia
     Dosage: 8 MG/DAY8.0MG UNKNOWN
     Route: 048

REACTIONS (1)
  - Fungal infection [Recovered/Resolved with Sequelae]

NARRATIVE: CASE EVENT DATE: 20231018
